FAERS Safety Report 9142782 (Version 4)
Quarter: 2013Q3

REPORT INFORMATION
  Report Type: Spontaneous
  Country: US (occurrence: US)
  Receive Date: 20130306
  Receipt Date: 20130909
  Transmission Date: 20140515
  Serious: Yes (Other)
  Sender: FDA-Public Use
  Company Number: US-ELI_LILLY_AND_COMPANY-US201302009253

PATIENT
  Sex: Male
  Weight: 39 kg

DRUGS (9)
  1. HUMALOG LISPRO [Suspect]
     Indication: TYPE 1 DIABETES MELLITUS
     Dosage: UNK UNK, PRN
  2. HUMALOG LISPRO [Suspect]
     Dosage: UNK UNK, PRN
  3. ILETIN [Suspect]
     Indication: TYPE 1 DIABETES MELLITUS
     Dosage: UNK, UNKNOWN
  4. ILETIN PORK LENTE [Suspect]
     Indication: TYPE 1 DIABETES MELLITUS
     Dosage: UNK, UNKNOWN
  5. LANTUS [Suspect]
     Indication: TYPE 1 DIABETES MELLITUS
     Dosage: 5 U, QD
  6. LANTUS [Suspect]
     Dosage: 3 U, EACH EVENING
  7. LANTUS [Suspect]
     Dosage: 2 U, EACH MORNING
  8. LANTUS [Suspect]
     Dosage: 4 U, EACH EVENING
  9. LANTUS [Suspect]
     Dosage: 2 U, EACH MORNING

REACTIONS (13)
  - Blood glucose decreased [Recovered/Resolved]
  - Weight decreased [Not Recovered/Not Resolved]
  - Blood glucose decreased [Not Recovered/Not Resolved]
  - Chronic obstructive pulmonary disease [Unknown]
  - Emphysema [Unknown]
  - Blood glucose increased [Unknown]
  - Blood glucose increased [Not Recovered/Not Resolved]
  - Visual acuity reduced [Unknown]
  - Nausea [Unknown]
  - Dizziness [Unknown]
  - Dehydration [Unknown]
  - Skin fissures [Unknown]
  - Feeling abnormal [Unknown]
